FAERS Safety Report 17889705 (Version 1)
Quarter: 2020Q2

REPORT INFORMATION
  Report Type: Spontaneous
  Country: US (occurrence: US)
  Receive Date: 20200612
  Receipt Date: 20200612
  Transmission Date: 20200714
  Serious: Yes (Hospitalization)
  Sender: FDA-Public Use
  Company Number: None

PATIENT
  Sex: Male

DRUGS (4)
  1. LEVOTHYROXIN [Concomitant]
     Active Substance: LEVOTHYROXINE
     Dates: start: 20200415
  2. ORENCIA [Suspect]
     Active Substance: ABATACEPT
     Indication: RHEUMATOID ARTHRITIS
     Dosage: ?          OTHER FREQUENCY:ONCE EVERY WEEK;?
     Route: 058
     Dates: start: 20180411
  3. HYDROXYCHLOT [Concomitant]
     Dates: start: 20200331
  4. PREDNISONE. [Concomitant]
     Active Substance: PREDNISONE
     Dates: start: 20120126

REACTIONS (3)
  - Disease risk factor [None]
  - Surgery [None]
  - Therapy interrupted [None]
